FAERS Safety Report 8479132 (Version 6)
Quarter: 2012Q4

REPORT INFORMATION
  Report Type: Report from Study
  Country: ES (occurrence: ES)
  Receive Date: 20120327
  Receipt Date: 20121019
  Transmission Date: 20130627
  Serious: Yes (Hospitalization)
  Sender: FDA-Public Use
  Company Number: ES-AMGEN-ESPCT2012013789

PATIENT
  Age: 72 Year
  Sex: Female
  Weight: 80 kg

DRUGS (16)
  1. DENOSUMAB [Suspect]
     Indication: BREAST CANCER
     Dosage: UNK
     Route: 058
     Dates: start: 20120131
  2. DOCETAXEL [Concomitant]
     Dosage: UNK
     Dates: start: 20120131
  3. CYCLOPHOSPHAMIDE [Concomitant]
     Dosage: UNK
     Dates: start: 20120131
  4. ACETYLSALICYLIC ACID [Concomitant]
     Indication: CARDIOVASCULAR EVENT PROPHYLAXIS
     Dosage: UNK
     Route: 048
     Dates: start: 19990615
  5. KYTRIL [Concomitant]
     Indication: ANTIEMETIC SUPPORTIVE CARE
     Dosage: 3 mg, q3wk
     Route: 042
     Dates: start: 20120131
  6. OMEPRAZOL [Concomitant]
     Indication: GASTRITIS PROPHYLAXIS
     Dosage: 20 mg, qd
     Route: 048
  7. FORTZAAR [Concomitant]
     Indication: HYPERTENSION
     Dosage: UNK UNK, qd
     Route: 048
     Dates: start: 19960615
  8. DEXAMETHASONE [Concomitant]
     Indication: ANTIEMETIC SUPPORTIVE CARE
     Dosage: 20 mg, q3wk
     Route: 042
     Dates: start: 20120131
  9. PREDNISONE [Concomitant]
     Indication: CHEMOTHERAPY
     Dosage: 50 mg, UNK
     Route: 048
     Dates: start: 20120131
  10. IMUREL [Concomitant]
     Indication: HEPATITIS
     Dosage: UNK UNK, qd
     Route: 048
     Dates: start: 19960615
  11. MIXTARD [Concomitant]
     Indication: DIABETES MELLITUS
     Dosage: UNK UNK, qd
     Route: 048
     Dates: start: 19710615
  12. IDAPTAN [Concomitant]
     Indication: CAROTID BRUIT
     Dosage: 20 mg, qd
     Route: 048
  13. SIMVASTATINA [Concomitant]
     Indication: DYSLIPIDAEMIA
     Dosage: 20 mg, qd
     Route: 048
     Dates: start: 19960615
  14. LIBRADIN [Concomitant]
     Indication: HYPERTENSION
     Dosage: 20 mg, UNK
     Route: 048
     Dates: start: 19960615
  15. CALCIUM [Concomitant]
     Dosage: 500 mg, UNK
     Route: 048
     Dates: start: 20120131
  16. VITAMIN D [Concomitant]
     Dosage: UNK
     Route: 048
     Dates: start: 20120131

REACTIONS (1)
  - Neutropenia [Recovered/Resolved]
